FAERS Safety Report 15186849 (Version 2)
Quarter: 2019Q1

REPORT INFORMATION
  Report Type: Report from Study
  Country: US (occurrence: US)
  Receive Date: 20180723
  Receipt Date: 20190130
  Transmission Date: 20190417
  Serious: No
  Sender: FDA-Public Use
  Company Number: US-EXELIXIS-CABO-18012175

PATIENT
  Sex: Male

DRUGS (12)
  1. LASIX [Concomitant]
     Active Substance: FUROSEMIDE
  2. OMEPRAZOLE. [Concomitant]
     Active Substance: OMEPRAZOLE
  3. VITAMIN D [Concomitant]
     Active Substance: CHOLECALCIFEROL
  4. COUMADIN [Concomitant]
     Active Substance: WARFARIN SODIUM
  5. VITAMIN D3 [Concomitant]
     Active Substance: CHOLECALCIFEROL
  6. CABOMETYX [Suspect]
     Active Substance: CABOZANTINIB S-MALATE
     Indication: RENAL CANCER
     Dosage: 60 MG, QD
     Route: 048
     Dates: start: 20170427
  7. AMLODIPINE BESYLATE. [Concomitant]
     Active Substance: AMLODIPINE BESYLATE
  8. SCOPOLAMINE HBR [Concomitant]
     Active Substance: SCOPOLAMINE
  9. LISINOPRIL. [Concomitant]
     Active Substance: LISINOPRIL
  10. PROVENTIL HFA [Concomitant]
     Active Substance: ALBUTEROL SULFATE
  11. ASPIRIN. [Concomitant]
     Active Substance: ASPIRIN
  12. LIPITOR [Concomitant]
     Active Substance: ATORVASTATIN CALCIUM

REACTIONS (1)
  - Skin ulcer [Recovering/Resolving]
